FAERS Safety Report 10522717 (Version 2)
Quarter: 2014Q4

REPORT INFORMATION
  Report Type: Report from Study
  Country: PL (occurrence: PL)
  Receive Date: 20141016
  Receipt Date: 20141027
  Transmission Date: 20150528
  Serious: Yes (Hospitalization)
  Sender: FDA-Public Use
  Company Number: PL-ROCHE-1473729

PATIENT
  Age: 54 Year
  Sex: Female

DRUGS (33)
  1. DOCETAXEL. [Suspect]
     Active Substance: DOCETAXEL
     Indication: HER-2 POSITIVE BREAST CANCER
     Dosage: LAST DOSE GIVEN PRIOR TO THE SAE WAS ON 30/MAY/2014.
     Route: 042
     Dates: start: 20131105
  2. ONDANSETRON [Concomitant]
     Active Substance: ONDANSETRON
     Route: 065
     Dates: start: 20140224, end: 20140224
  3. TRASTUZUMAB [Suspect]
     Active Substance: TRASTUZUMAB
     Indication: HER-2 POSITIVE BREAST CANCER
     Dosage: LOADING DOSE ON DAY 1 CYCLE 1 PER PROTOCOL
     Route: 042
     Dates: start: 20131104, end: 20131104
  4. TRASTUZUMAB [Suspect]
     Active Substance: TRASTUZUMAB
     Dosage: LAST DOSE GIVEN BEFORE SAE WAS ON 06/OCT/2014.
     Route: 042
     Dates: start: 20131125
  5. ONDANSETRON [Concomitant]
     Active Substance: ONDANSETRON
     Route: 065
     Dates: start: 20131217, end: 20131217
  6. ONDANSETRON [Concomitant]
     Active Substance: ONDANSETRON
     Route: 065
     Dates: start: 20140530, end: 20140530
  7. DEXAMETHASON [Concomitant]
     Active Substance: DEXAMETHASONE
     Dosage: GIVEN BEFORE DOCETAXEL.
     Route: 065
     Dates: start: 20140109, end: 20140111
  8. DEXAMETHASON [Concomitant]
     Active Substance: DEXAMETHASONE
     Dosage: GIVEN BEFORE DOCETAXEL.
     Route: 065
     Dates: start: 20140130, end: 20140201
  9. FLUCONAZOLE. [Concomitant]
     Active Substance: FLUCONAZOLE
     Route: 065
     Dates: start: 20131112, end: 20131117
  10. ONDANSETRON [Concomitant]
     Active Substance: ONDANSETRON
     Route: 065
     Dates: start: 20131126, end: 20131126
  11. DEXAMETHASON [Concomitant]
     Active Substance: DEXAMETHASONE
     Dosage: GIVEN BEFORE DOCETAXEL
     Route: 065
     Dates: start: 20131125, end: 20131127
  12. DEXAMETHASON [Concomitant]
     Active Substance: DEXAMETHASONE
     Dosage: GIVEN BEFORE DOCETAXEL.
     Route: 065
     Dates: start: 20140508, end: 20140510
  13. INDAPAMIDUM [Concomitant]
     Route: 065
     Dates: start: 20120615
  14. ONDANSETRON [Concomitant]
     Active Substance: ONDANSETRON
     Route: 065
     Dates: start: 20140327, end: 20140327
  15. ONDANSETRON [Concomitant]
     Active Substance: ONDANSETRON
     Route: 065
     Dates: start: 20140418, end: 20140418
  16. LORATAN [Concomitant]
     Route: 065
     Dates: start: 20131112, end: 20131117
  17. ONDANSETRON [Concomitant]
     Active Substance: ONDANSETRON
     Indication: ANTIEMETIC SUPPORTIVE CARE
     Route: 065
     Dates: start: 20131105, end: 20131105
  18. ONDANSETRON [Concomitant]
     Active Substance: ONDANSETRON
     Route: 065
     Dates: start: 20140110, end: 20140110
  19. ONDANSETRON [Concomitant]
     Active Substance: ONDANSETRON
     Route: 065
     Dates: start: 20140131, end: 20140131
  20. CEFALEXINUM [Concomitant]
     Route: 065
     Dates: start: 20140312, end: 20140324
  21. PERTUZUMAB [Suspect]
     Active Substance: PERTUZUMAB
     Indication: HER-2 POSITIVE BREAST CANCER
     Dosage: LOADING DOSE PER PROTOCOL.ON DAY1 OF CYCLE 1
     Route: 042
     Dates: start: 20131104, end: 20131104
  22. KALII CHLORIDI [Concomitant]
     Indication: HYPOKALAEMIA
     Route: 065
     Dates: start: 20120615
  23. DEXAMETHASON [Concomitant]
     Active Substance: DEXAMETHASONE
     Indication: PROPHYLAXIS
     Dosage: GIVEN BEFORE DOCETAXEL.
     Route: 065
     Dates: start: 20131104, end: 20131106
  24. DEXAMETHASON [Concomitant]
     Active Substance: DEXAMETHASONE
     Dosage: GIVEN BEFORE DOCETAXEL.
     Route: 065
     Dates: start: 20140223, end: 20140225
  25. FUROSEMID [Concomitant]
     Active Substance: FUROSEMIDE
     Route: 065
     Dates: start: 20140321, end: 20141002
  26. PERTUZUMAB [Suspect]
     Active Substance: PERTUZUMAB
     Dosage: LAST DOSE BEFORE SAE WAS GIVEN ON 06/OCT/2014.
     Route: 042
     Dates: start: 20131125
  27. SIMVASTATIN. [Concomitant]
     Active Substance: SIMVASTATIN
     Route: 065
     Dates: start: 20100901, end: 20131010
  28. DEXAMETHASON [Concomitant]
     Active Substance: DEXAMETHASONE
     Dosage: GIVEN BEFORE DOCETAXEL.
     Route: 065
     Dates: start: 20140529, end: 20140531
  29. ADVANTAN [Concomitant]
     Active Substance: CORTICOSTEROID NOS
     Route: 061
     Dates: start: 20131112, end: 20131117
  30. ONDANSETRON [Concomitant]
     Active Substance: ONDANSETRON
     Route: 065
     Dates: start: 20140509, end: 20140509
  31. DEXAMETHASON [Concomitant]
     Active Substance: DEXAMETHASONE
     Dosage: GIVEN BEFORE DOCETAXEL
     Route: 065
     Dates: start: 20131216, end: 20131219
  32. DEXAMETHASON [Concomitant]
     Active Substance: DEXAMETHASONE
     Dosage: GIVEN BEFORE DOCETAXEL.
     Route: 065
     Dates: start: 20140326, end: 20140328
  33. DEXAMETHASON [Concomitant]
     Active Substance: DEXAMETHASONE
     Dosage: GIVEN BEFORE DOCETAXEL.
     Route: 065
     Dates: start: 20140417, end: 20140419

REACTIONS (1)
  - Metastases to central nervous system [Unknown]

NARRATIVE: CASE EVENT DATE: 20141007
